FAERS Safety Report 9440939 (Version 2)
Quarter: 2013Q4

REPORT INFORMATION
  Report Type: Spontaneous
  Country: US (occurrence: US)
  Receive Date: 20130805
  Receipt Date: 20131028
  Transmission Date: 20140711
  Serious: No
  Sender: FDA-Public Use
  Company Number: US-ROXANE LABORATORIES, INC.-2013-RO-01302RO

PATIENT
  Age: 59 Year
  Sex: Female
  Weight: 48 kg

DRUGS (4)
  1. BUTORPHANOL [Suspect]
     Indication: MIGRAINE
     Route: 045
  2. LEXAPRO [Concomitant]
     Dosage: 20 MG
  3. LOPRESSOR [Concomitant]
     Dosage: 200 MG
  4. LISINOPRIL [Concomitant]
     Dosage: 30 MG

REACTIONS (2)
  - Drug ineffective [Unknown]
  - Product quality issue [Unknown]
